FAERS Safety Report 9381700 (Version 2)
Quarter: 2013Q3

REPORT INFORMATION
  Report Type: Spontaneous
  Country: FR (occurrence: FR)
  Receive Date: 20130703
  Receipt Date: 20130715
  Transmission Date: 20140515
  Serious: Yes (Other)
  Sender: FDA-Public Use
  Company Number: FR-PFIZER INC-2013196518

PATIENT
  Sex: Male

DRUGS (3)
  1. EFFEXOR [Suspect]
     Indication: DEPRESSION
     Dosage: 37.5 MG, 2X/DAY
     Route: 064
     Dates: end: 2010
  2. EFFEXOR [Suspect]
     Indication: SOCIAL PHOBIA
     Dosage: 75 MG AND 37.5 MG DAILY
     Route: 064
     Dates: start: 201005, end: 201008
  3. SERESTA [Concomitant]
     Dosage: 10 UNK, 1 OR 2 DF DAILY
     Route: 064

REACTIONS (2)
  - Maternal exposure during pregnancy [Unknown]
  - Foetal cardiac disorder [Unknown]
